FAERS Safety Report 23639938 (Version 1)
Quarter: 2024Q1

REPORT INFORMATION
  Report Type: Spontaneous
  Country: US (occurrence: US)
  Receive Date: 20240316
  Receipt Date: 20240316
  Transmission Date: 20240410
  Serious: No
  Sender: FDA-Public Use
  Company Number: US-GLAXOSMITHKLINE-US2024AMR031318

PATIENT
  Sex: Female

DRUGS (1)
  1. ZEJULA [Suspect]
     Active Substance: NIRAPARIB
     Indication: Ovarian cancer
     Dosage: 100 MG, QD
     Dates: start: 20240128

REACTIONS (5)
  - Dizziness [Not Recovered/Not Resolved]
  - Asthenia [Not Recovered/Not Resolved]
  - Mobility decreased [Not Recovered/Not Resolved]
  - Blood pressure increased [Not Recovered/Not Resolved]
  - Product dose omission issue [Unknown]
